FAERS Safety Report 8335784-3 (Version None)
Quarter: 2012Q2

REPORT INFORMATION
  Report Type: 
  Country: None (occurrence: None)
  Receive Date: 20120504
  Receipt Date: 20120427
  Transmission Date: 20120825
  Serious: No
  Sender: FDA-Public Use
  Company Number: US-BIOGENIDEC-2012BI014780

PATIENT
  Sex: Male

DRUGS (1)
  1. AVONEX [Suspect]
     Indication: MULTIPLE SCLEROSIS
     Route: 030
     Dates: start: 20090418

REACTIONS (5)
  - MULTIPLE SCLEROSIS [None]
  - PAIN [None]
  - PAIN IN EXTREMITY [None]
  - CONTUSION [None]
  - MALAISE [None]
